FAERS Safety Report 4269881-9 (Version None)
Quarter: 2004Q1

REPORT INFORMATION
  Report Type: 
  Country: None (occurrence: None)
  Receive Date: 20040112
  Receipt Date: 20031229
  Transmission Date: 20041129
  Serious: Yes (Hospitalization)
  Sender: FDA-Public Use
  Company Number: FABR-10414

PATIENT
  Age: 46 Year
  Sex: Male
  Weight: 61 kg

DRUGS (4)
  1. FABRAZYME [Suspect]
     Indication: FABRY'S DISEASE
     Dosage: 61 MG Q2WKS IV
     Route: 042
  2. CYCLOSPORINE [Concomitant]
  3. IMURAN [Concomitant]
  4. CARDIZEM [Concomitant]

REACTIONS (8)
  - ATRIAL FLUTTER [None]
  - BLOOD CREATININE INCREASED [None]
  - CORONARY ARTERY DISEASE [None]
  - FATIGUE [None]
  - INSOMNIA [None]
  - PULMONARY OEDEMA [None]
  - QUADRUPLE VESSEL BYPASS GRAFT [None]
  - TACHYCARDIA [None]
